FAERS Safety Report 13143600 (Version 1)
Quarter: 2017Q1

REPORT INFORMATION
  Report Type: Spontaneous
  Country: US (occurrence: US)
  Receive Date: 20170124
  Receipt Date: 20170124
  Transmission Date: 20170428
  Serious: No
  Sender: FDA-Public Use
  Company Number: US-BAUSCH-BL-2016-003862

PATIENT
  Age: 57 Year
  Sex: Female
  Weight: 54.48 kg

DRUGS (2)
  1. ALAWAY [Suspect]
     Active Substance: KETOTIFEN FUMARATE
     Indication: EYE ALLERGY
     Route: 047
     Dates: end: 201601
  2. RENU DROPS (EDETATE SODIUM\SODIUM CHLORIDE) [Suspect]
     Active Substance: EDETATE SODIUM\SODIUM CHLORIDE
     Indication: EYE DISORDER
     Route: 047

REACTIONS (2)
  - Eye irritation [Recovering/Resolving]
  - Dry eye [Recovering/Resolving]
